FAERS Safety Report 9907422 (Version 2)
Quarter: 2015Q3

REPORT INFORMATION
  Report Type: Spontaneous
  Country: FR (occurrence: FR)
  Receive Date: 20140218
  Receipt Date: 20150918
  Transmission Date: 20151125
  Serious: Yes (Other)
  Sender: FDA-Public Use
  Company Number: FR-ABBVIE-14P-056-1203441-00

PATIENT
  Age: 48 Year
  Sex: Male

DRUGS (2)
  1. LIPANTHYL [Suspect]
     Active Substance: FENOFIBRATE
     Indication: HYPERCHOLESTEROLAEMIA
     Route: 048
     Dates: start: 1985, end: 1999
  2. FONZYLANE [Concomitant]
     Active Substance: BUFLOMEDIL
     Indication: PERIPHERAL ARTERIAL OCCLUSIVE DISEASE
     Route: 048
     Dates: start: 2000, end: 2010

REACTIONS (13)
  - Tooth loss [Unknown]
  - Salivary gland disorder [Unknown]
  - Musculoskeletal stiffness [Recovered/Resolved]
  - Blood creatine phosphokinase increased [Recovered/Resolved]
  - Skin fragility [Unknown]
  - Muscle spasms [Recovered/Resolved]
  - Paraesthesia [Unknown]
  - Hypoacusis [Unknown]
  - Visual acuity reduced [Unknown]
  - Hypoaesthesia oral [Unknown]
  - Muscle disorder [Recovered/Resolved]
  - Quality of life decreased [Unknown]
  - Muscle spasms [Recovering/Resolving]

NARRATIVE: CASE EVENT DATE: 1986
